FAERS Safety Report 10039892 (Version 2)
Quarter: 2014Q2

REPORT INFORMATION
  Report Type: Spontaneous
  Country: AE (occurrence: AE)
  Receive Date: 20140326
  Receipt Date: 20140612
  Transmission Date: 20141212
  Serious: Yes (Other)
  Sender: FDA-Public Use
  Company Number: AE-JNJFOC-20140312481

PATIENT
  Age: 24 Year
  Sex: Male
  Weight: 80 kg

DRUGS (4)
  1. SIMPONI [Suspect]
     Indication: ANKYLOSING SPONDYLITIS
     Route: 058
     Dates: start: 20140306, end: 20140315
  2. SIMPONI [Suspect]
     Indication: ANKYLOSING SPONDYLITIS
     Route: 058
     Dates: start: 20140206, end: 20140306
  3. LYRICA [Concomitant]
     Route: 065
  4. CELEBREX [Concomitant]
     Indication: PAIN
     Route: 065

REACTIONS (1)
  - Depression [Recovered/Resolved]
